FAERS Safety Report 8815954 (Version 2)
Quarter: 2014Q3

REPORT INFORMATION
  Report Type: Report from Study
  Country: US (occurrence: US)
  Receive Date: 20120928
  Receipt Date: 20140901
  Transmission Date: 20150326
  Serious: Yes (Hospitalization)
  Sender: FDA-Public Use
  Company Number: US-ROCHE-1126319

PATIENT
  Sex: Female
  Weight: 53 kg

DRUGS (8)
  1. AVASTIN [Suspect]
     Active Substance: BEVACIZUMAB
     Indication: BREAST CANCER FEMALE
     Route: 042
  2. ZOMETA [Concomitant]
     Active Substance: ZOLEDRONIC ACID
  3. HERCEPTIN [Suspect]
     Active Substance: TRASTUZUMAB
     Indication: PRODUCT USED FOR UNKNOWN INDICATION
     Route: 042
  4. DOXIL [Concomitant]
     Active Substance: DOXORUBICIN HYDROCHLORIDE
  5. AVASTIN [Suspect]
     Active Substance: BEVACIZUMAB
     Indication: BONE CANCER
  6. AVASTIN [Suspect]
     Active Substance: BEVACIZUMAB
     Indication: BREAST CANCER METASTATIC
  7. ABRAXANE [Concomitant]
     Active Substance: PACLITAXEL
  8. PERIFOSINE [Concomitant]
     Active Substance: PERIFOSINE

REACTIONS (7)
  - Metastases to bone [Unknown]
  - Neck mass [Unknown]
  - Mouth ulceration [Unknown]
  - Off label use [Unknown]
  - Dehydration [Unknown]
  - Disease progression [Unknown]
  - Presyncope [Unknown]
